FAERS Safety Report 12846812 (Version 1)
Quarter: 2016Q4

REPORT INFORMATION
  Report Type: Spontaneous
  Country: US (occurrence: US)
  Receive Date: 20161013
  Receipt Date: 20161013
  Transmission Date: 20170207
  Serious: Yes (Other)
  Sender: FDA-Public Use
  Company Number: None

PATIENT
  Age: 73 Year
  Sex: Male
  Weight: 90 kg

DRUGS (1)
  1. FLECAINIDE [Suspect]
     Active Substance: FLECAINIDE
     Indication: ATRIAL FIBRILLATION
     Dates: start: 19950710, end: 20161011

REACTIONS (7)
  - Dizziness [None]
  - Vision blurred [None]
  - Fatigue [None]
  - Dyspnoea [None]
  - Confusional state [None]
  - Balance disorder [None]
  - Toxicity to various agents [None]

NARRATIVE: CASE EVENT DATE: 20161011
